FAERS Safety Report 5973383-9 (Version None)
Quarter: 2008Q4

REPORT INFORMATION
  Report Type: 
  Country: None (occurrence: None)
  Receive Date: 20081201
  Receipt Date: 20080521
  Transmission Date: 20090506
  Serious: Yes (Other)
  Sender: FDA-Public Use
  Company Number: US-AMGEN-KDL266201

PATIENT
  Sex: Male

DRUGS (1)
  1. ENBREL [Suspect]
     Indication: PSORIASIS
     Route: 058
     Dates: start: 20030701

REACTIONS (15)
  - ARTHRALGIA [None]
  - ASPARTATE AMINOTRANSFERASE INCREASED [None]
  - BURNOUT SYNDROME [None]
  - DIARRHOEA [None]
  - EPSTEIN-BARR VIRUS ANTIBODY POSITIVE [None]
  - FALSE POSITIVE LABORATORY RESULT [None]
  - FATIGUE [None]
  - HEADACHE [None]
  - JOINT SWELLING [None]
  - LYMPHOCYTE COUNT INCREASED [None]
  - MONOCYTE COUNT INCREASED [None]
  - NEUTROPHIL COUNT DECREASED [None]
  - PYREXIA [None]
  - RED CELL DISTRIBUTION WIDTH DECREASED [None]
  - WHITE BLOOD CELL COUNT DECREASED [None]
